FAERS Safety Report 7067761-7 (Version None)
Quarter: 2010Q4

REPORT INFORMATION
  Report Type: 
  Country: None (occurrence: None)
  Receive Date: 20101028
  Receipt Date: 20100106
  Transmission Date: 20110411
  Serious: No
  Sender: FDA-Public Use
  Company Number: A0816987A

PATIENT
  Age: 46 Year
  Sex: Female

DRUGS (16)
  1. SEREVENT [Suspect]
     Indication: CHRONIC OBSTRUCTIVE PULMONARY DISEASE
     Dosage: 2PUFF PER DAY
     Route: 055
     Dates: start: 20040101
  2. COMBIVENT [Concomitant]
  3. ALLEGRA D 24 HOUR [Concomitant]
  4. XANAX [Concomitant]
  5. CLONIDINE HYDROCHLORIDE [Concomitant]
  6. CYANOCOBALAMIN + VITAMIN B COMPLEX [Concomitant]
  7. EPIPEN [Concomitant]
  8. METFORMIN [Concomitant]
  9. KEPPRA [Concomitant]
  10. OXYCONTIN [Concomitant]
  11. SOMA [Concomitant]
  12. TRICOR [Concomitant]
  13. ZOMIG [Concomitant]
  14. VOLTAREN [Concomitant]
  15. PREVACID [Concomitant]
  16. POTASSIUM CHLORIDE [Concomitant]

REACTIONS (3)
  - FEELING JITTERY [None]
  - NERVOUSNESS [None]
  - PRODUCT QUALITY ISSUE [None]
